FAERS Safety Report 9925777 (Version 1)
Quarter: 2014Q1

REPORT INFORMATION
  Report Type: Spontaneous
  Country: US (occurrence: None)
  Receive Date: 20140221
  Receipt Date: 20140221
  Transmission Date: 20141002
  Serious: Yes (Hospitalization)
  Sender: FDA-Public Use
  Company Number: SYM-2014-15735

PATIENT
  Age: 52 Year
  Sex: Female

DRUGS (2)
  1. XENAZINE (25 MILLIGRAM, TABLET) (TETRABENAZINE, TETRABENAZINE)? [Suspect]
     Indication: CHOREA
     Route: 048
     Dates: start: 2010
  2. XENAZINE (25 MILLIGRAM, TABLET) (TETRABENAZINE, TETRABENAZINE)? [Suspect]
     Indication: MEIGE^S SYNDROME
     Route: 048
     Dates: start: 2010

REACTIONS (2)
  - Loss of consciousness [None]
  - Cerebrovascular accident [None]
